FAERS Safety Report 8974236 (Version 1)
Quarter: 2012Q4

REPORT INFORMATION
  Report Type: Spontaneous
  Country: US (occurrence: None)
  Receive Date: 20121217
  Receipt Date: 20121217
  Transmission Date: 20130627
  Serious: Yes (Other)
  Sender: FDA-Public Use
  Company Number: None

PATIENT
  Sex: Female
  Weight: 72.58 kg

DRUGS (1)
  1. LISINOPRIL/HCTZ [Suspect]
     Dosage: 20-12.5mg  1 tablet am

REACTIONS (3)
  - Blood pressure increased [None]
  - Heart rate increased [None]
  - Feeling abnormal [None]
